FAERS Safety Report 5455894-8 (Version None)
Quarter: 2007Q3

REPORT INFORMATION
  Report Type: 
  Country: None (occurrence: None)
  Receive Date: 20070918
  Receipt Date: 20070228
  Transmission Date: 20080115
  Serious: Yes (Other)
  Sender: FDA-Public Use
  Company Number: US-ASTRAZENECA-2006UW24128

PATIENT
  Sex: Female
  Weight: 65.9 kg

DRUGS (4)
  1. SEROQUEL [Suspect]
     Indication: BIPOLAR DISORDER
     Dosage: 100MG, 600MG
     Route: 048
     Dates: start: 20060801
  2. RISPERDAL [Suspect]
  3. ZYPREXA [Suspect]
  4. HALDOL [Concomitant]

REACTIONS (1)
  - PANCREATITIS [None]
